FAERS Safety Report 18540286 (Version 1)
Quarter: 2020Q4

REPORT INFORMATION
  Report Type: Spontaneous
  Country: US (occurrence: US)
  Receive Date: 20201124
  Receipt Date: 20201124
  Transmission Date: 20210114
  Serious: No
  Sender: FDA-Public Use
  Company Number: None

PATIENT
  Age: 72 Year
  Sex: Male

DRUGS (4)
  1. ZOLPIDEM 5 MG [Concomitant]
     Active Substance: ZOLPIDEM TARTRATE
     Dates: start: 20190401
  2. GABAPENTIN 100 MG [Concomitant]
     Active Substance: GABAPENTIN
     Dates: start: 20200512
  3. LISINOPRIL 30 MG [Concomitant]
     Dates: start: 20190415
  4. BOSULIF [Suspect]
     Active Substance: BOSUTINIB MONOHYDRATE
     Indication: LEUKAEMIA
     Route: 048
     Dates: start: 20190713

REACTIONS (2)
  - Diarrhoea [None]
  - Therapy interrupted [None]

NARRATIVE: CASE EVENT DATE: 20201109
